FAERS Safety Report 6371184-3 (Version None)
Quarter: 2009Q3

REPORT INFORMATION
  Report Type: 
  Country: None (occurrence: None)
  Receive Date: 20090923
  Receipt Date: 20071220
  Transmission Date: 20100115
  Serious: Yes (Other)
  Sender: FDA-Public Use
  Company Number: US-ASTRAZENECA-2006UW27648

PATIENT
  Age: 52 Year
  Sex: Female
  Weight: 71.6 kg

DRUGS (15)
  1. SEROQUEL [Suspect]
     Indication: INSOMNIA
     Route: 048
     Dates: start: 20040801, end: 20060201
  2. SEROQUEL [Suspect]
     Dosage: 25-200 MG, DISPENSED
     Route: 048
     Dates: start: 20040815
  3. RISPERDAL [Concomitant]
     Dates: start: 20010101
  4. TOPAMAX [Concomitant]
     Indication: DEPRESSION
     Dosage: 25-100 MG, AT BED TIME
     Dates: start: 20040823
  5. TOPAMAX [Concomitant]
     Indication: MIGRAINE
     Dosage: 25-100 MG, AT BED TIME
     Dates: start: 20040823
  6. ZELNORM [Concomitant]
     Dates: start: 20040919
  7. VALIUM [Concomitant]
     Dosage: 10-20 MG
     Route: 048
     Dates: start: 20040721
  8. NEURONTIN [Concomitant]
     Route: 048
     Dates: start: 20040919
  9. LEXAPRO [Concomitant]
     Dates: start: 20040823
  10. POTASSIUM CHLORIDE [Concomitant]
     Dates: start: 20041022
  11. PREVACID [Concomitant]
     Dates: start: 20041022
  12. FUROSEMIDE [Concomitant]
     Dates: start: 20041022
  13. ZOCOR [Concomitant]
     Dates: start: 20041022
  14. PREDNISONE [Concomitant]
     Dosage: 20-40 MG
     Route: 048
     Dates: start: 20040823
  15. PROTONIX [Concomitant]
     Route: 048
     Dates: start: 20040823

REACTIONS (1)
  - PANCREATITIS [None]
